FAERS Safety Report 12570328 (Version 1)
Quarter: 2016Q3

REPORT INFORMATION
  Report Type: Spontaneous
  Country: US (occurrence: None)
  Receive Date: 20160718
  Receipt Date: 20160718
  Transmission Date: 20161109
  Serious: Yes (Other)
  Sender: FDA-Public Use
  Company Number: None

PATIENT
  Age: 58 Year
  Sex: Female
  Weight: 51.26 kg

DRUGS (7)
  1. CIPROFLOXACN 250 MG, 250 MG [Suspect]
     Active Substance: CIPROFLOXACIN
     Indication: URINARY TRACT INFECTION
     Dosage: 10 TABLET(S) TAKEN BY MOUTH EVERY 12 HOURS
     Route: 048
     Dates: start: 20160630, end: 20160705
  2. TOPAMAX [Concomitant]
     Active Substance: TOPIRAMATE
  3. ASPIRIN. [Concomitant]
     Active Substance: ASPIRIN
  4. MOTRIN [Concomitant]
     Active Substance: IBUPROFEN
  5. MAGNESIUM [Concomitant]
     Active Substance: MAGNESIUM
  6. TYLENOL [Suspect]
     Active Substance: ACETAMINOPHEN
  7. B VITAMINS [Concomitant]
     Active Substance: CYANOCOBALAMIN\DEXPANTHENOL\NIACINAMIDE\PYRIDOXINE HYDROCHLORIDE\RIBOFLAVIN 5^-PHOSPHATE SODIUM\THIAMINE HYDROCHLORIDE\VITAMIN B COMPLEX

REACTIONS (9)
  - Heart rate increased [None]
  - Arthralgia [None]
  - Blood pressure fluctuation [None]
  - Paraesthesia [None]
  - Headache [None]
  - Arthropathy [None]
  - Myalgia [None]
  - Muscle tightness [None]
  - Gait disturbance [None]

NARRATIVE: CASE EVENT DATE: 20160701
